FAERS Safety Report 9538100 (Version 1)
Quarter: 2013Q3

REPORT INFORMATION
  Report Type: Spontaneous
  Country: US (occurrence: US)
  Receive Date: 20130920
  Receipt Date: 20130920
  Transmission Date: 20140515
  Serious: Yes (Hospitalization)
  Sender: FDA-Public Use
  Company Number: US-BIOGENIDEC-2013BI088745

PATIENT
  Age: 71 Year
  Sex: Female

DRUGS (1)
  1. AVONEX [Suspect]
     Indication: MULTIPLE SCLEROSIS
     Route: 030
     Dates: start: 201303

REACTIONS (4)
  - Nephrolithiasis [Recovered/Resolved]
  - Gastrointestinal disorder [Recovered/Resolved]
  - Device malfunction [Not Recovered/Not Resolved]
  - Mental status changes [Recovered/Resolved]
